FAERS Safety Report 16746716 (Version 1)
Quarter: 2019Q3

REPORT INFORMATION
  Report Type: Spontaneous
  Country: US (occurrence: US)
  Receive Date: 20190709
  Receipt Date: 20190709
  Transmission Date: 20191005
  Serious: No
  Sender: FDA-Public Use
  Company Number: None

PATIENT
  Age: 72 Year
  Sex: Female
  Weight: 58.06 kg

DRUGS (4)
  1. LOSARTAN. [Concomitant]
     Active Substance: LOSARTAN
  2. ZOLPIDEM TARTRATE 10MG TAB [Suspect]
     Active Substance: ZOLPIDEM TARTRATE
     Indication: INSOMNIA
     Route: 048
     Dates: start: 2014, end: 2019
  3. ZOLPIDEM TARTRATE 10MG TAB [Suspect]
     Active Substance: ZOLPIDEM TARTRATE
     Indication: TINNITUS
  4. ANEST... [Concomitant]

REACTIONS (3)
  - Amnesia [None]
  - Hypoaesthesia [None]
  - Pain [None]

NARRATIVE: CASE EVENT DATE: 20190601
